FAERS Safety Report 10521375 (Version 2)
Quarter: 2014Q4

REPORT INFORMATION
  Report Type: Spontaneous
  Country: US (occurrence: US)
  Receive Date: 20141016
  Receipt Date: 20141016
  Transmission Date: 20150528
  Serious: Yes (Other)
  Sender: FDA-Public Use
  Company Number: US-UCBSA-2014011578

PATIENT
  Sex: Female

DRUGS (3)
  1. LAMICTAL [Concomitant]
     Active Substance: LAMOTRIGINE
     Indication: PRODUCT USED FOR UNKNOWN INDICATION
     Dosage: HIGH DOSAGE, 800  MG PER DAY
  2. KEPPRA XR [Suspect]
     Active Substance: LEVETIRACETAM
     Indication: PRODUCT USED FOR UNKNOWN INDICATION
     Dosage: 750 MG, 2X/DAY (BID)
  3. FOLATE [Concomitant]
     Active Substance: FOLATE SODIUM
     Dosage: 2MG

REACTIONS (3)
  - Generalised tonic-clonic seizure [Unknown]
  - Pregnancy [Unknown]
  - Inappropriate schedule of drug administration [Unknown]
